FAERS Safety Report 6326134-2 (Version None)
Quarter: 2009Q3

REPORT INFORMATION
  Report Type: 
  Country: None (occurrence: None)
  Receive Date: 20090824
  Receipt Date: 20090817
  Transmission Date: 20100115
  Serious: Yes (Death, Other)
  Sender: FDA-Public Use
  Company Number: PHHY2009US34982

PATIENT
  Age: 40 Year
  Sex: Male

DRUGS (4)
  1. CLOZAPINE [Suspect]
     Indication: SCHIZOPHRENIA
     Dosage: 350 MG, BID
  2. CLOZAPINE [Suspect]
     Dosage: 400 MG, BID
  3. TOPIRAMATE [Concomitant]
     Indication: WEIGHT INCREASED
     Dosage: 100 MG, BID
  4. CITALOPRAM [Concomitant]
     Indication: DEPRESSED MOOD
     Dosage: UNK

REACTIONS (10)
  - CARDIOMEGALY [None]
  - CIRCULATORY COLLAPSE [None]
  - CONGESTIVE CARDIOMYOPATHY [None]
  - CONVULSION [None]
  - DEPRESSED MOOD [None]
  - PNEUMONIA [None]
  - PRODUCTIVE COUGH [None]
  - SINUS ARRHYTHMIA [None]
  - WEIGHT INCREASED [None]
  - WHITE BLOOD CELL COUNT INCREASED [None]
